FAERS Safety Report 5482761-6 (Version None)
Quarter: 2007Q4

REPORT INFORMATION
  Report Type: 
  Country: None (occurrence: None)
  Receive Date: 20071011
  Receipt Date: 20070929
  Transmission Date: 20080405
  Serious: Yes (Other)
  Sender: FDA-Public Use
  Company Number: US-PFIZER INC-2007082569

PATIENT
  Sex: Female
  Weight: 63.636 kg

DRUGS (2)
  1. CHANTIX [Suspect]
     Indication: SMOKING CESSATION THERAPY
     Dates: start: 20070801, end: 20070801
  2. TOPAMAX [Concomitant]

REACTIONS (7)
  - ABDOMINAL PAIN UPPER [None]
  - ALOPECIA [None]
  - ASPARTATE AMINOTRANSFERASE INCREASED [None]
  - BLOOD CREATINE PHOSPHOKINASE INCREASED [None]
  - BLOOD GLUCOSE DECREASED [None]
  - MUSCLE SWELLING [None]
  - MUSCULAR WEAKNESS [None]
